FAERS Safety Report 25371418 (Version 2)
Quarter: 2025Q3

REPORT INFORMATION
  Report Type: Spontaneous
  Country: EU (occurrence: EU)
  Receive Date: 20250529
  Receipt Date: 20250805
  Transmission Date: 20251021
  Serious: Yes (Death, Hospitalization, Other)
  Sender: ACCORD
  Company Number: None

PATIENT
  Age: 91 Year
  Sex: Female
  Weight: 67.5 kg

DRUGS (2)
  1. METHOTREXATE [Suspect]
     Active Substance: METHOTREXATE
     Indication: Rheumatoid arthritis
     Dosage: STRENGTH: 10 MG, 1 DOSE PER WEEK
     Dates: start: 20250305, end: 20250331
  2. POTASSIUM [Concomitant]
     Active Substance: POTASSIUM

REACTIONS (7)
  - Salivary hypersecretion [Recovering/Resolving]
  - Mouth haemorrhage [Recovering/Resolving]
  - Product preparation issue [Recovered/Resolved]
  - Death [Fatal]
  - Inappropriate schedule of product administration [Unknown]
  - Prescribed overdose [Unknown]
  - Stomatitis necrotising [Unknown]

NARRATIVE: CASE EVENT DATE: 20250401
